FAERS Safety Report 9070223 (Version 2)
Quarter: 2013Q1

REPORT INFORMATION
  Report Type: Spontaneous
  Country: AU (occurrence: AU)
  Receive Date: 20130129
  Receipt Date: 20130319
  Transmission Date: 20140127
  Serious: Yes (Other)
  Sender: FDA-Public Use
  Company Number: AU-WATSON-2013-00660

PATIENT
  Sex: Male

DRUGS (1)
  1. MELOXICAM [Suspect]
     Indication: SPINAL PAIN
     Dosage: 15 MG, DAILY
     Route: 048
     Dates: start: 2010

REACTIONS (6)
  - Blindness transient [Not Recovered/Not Resolved]
  - Gout [Not Recovered/Not Resolved]
  - Nasal obstruction [Not Recovered/Not Resolved]
  - Eczema [Not Recovered/Not Resolved]
  - Tinnitus [Not Recovered/Not Resolved]
  - Dizziness [Not Recovered/Not Resolved]
